FAERS Safety Report 12477206 (Version 2)
Quarter: 2017Q3

REPORT INFORMATION
  Report Type: Report from Study
  Country: None (occurrence: US)
  Receive Date: 20160617
  Receipt Date: 20170727
  Transmission Date: 20171127
  Serious: Yes (Hospitalization, Other)
  Sender: FDA-Public Use
  Company Number: US-ABBVIE-16K-163-1632216-00

PATIENT
  Sex: Female

DRUGS (3)
  1. DICLOFENAC [Suspect]
     Active Substance: DICLOFENAC
     Indication: BACK PAIN
     Route: 065
  2. HUMIRA [Suspect]
     Active Substance: ADALIMUMAB
     Indication: ANKYLOSING SPONDYLITIS
     Route: 058
     Dates: start: 2008, end: 2012
  3. HUMIRA [Suspect]
     Active Substance: ADALIMUMAB
     Route: 058

REACTIONS (8)
  - Intestinal obstruction [Recovered/Resolved]
  - Clostridium difficile infection [Recovered/Resolved]
  - Joint crepitation [Recovered/Resolved]
  - Colitis [Recovered/Resolved]
  - Intervertebral disc protrusion [Recovered/Resolved]
  - Diarrhoea [Recovered/Resolved]
  - Irritable bowel syndrome [Recovered/Resolved]
  - Rotator cuff syndrome [Recovering/Resolving]

NARRATIVE: CASE EVENT DATE: 2011
